FAERS Safety Report 24214232 (Version 5)
Quarter: 2024Q4

REPORT INFORMATION
  Report Type: Report from Study
  Country: GB (occurrence: GB)
  Receive Date: 20240815
  Receipt Date: 20241009
  Transmission Date: 20250115
  Serious: Yes (Hospitalization)
  Sender: ABBVIE
  Company Number: GB-ABBVIE-5880273

PATIENT
  Age: 48 Year
  Sex: Male

DRUGS (3)
  1. SKYRIZI [Suspect]
     Active Substance: RISANKIZUMAB-RZAA
     Indication: Psoriasis
     Dosage: FORM STRENGTH 150 MG
     Route: 058
     Dates: start: 20230214, end: 2024
  2. SKYRIZI [Suspect]
     Active Substance: RISANKIZUMAB-RZAA
     Dosage: FORM STRENGTH: 150 MG
     Route: 058
     Dates: start: 20240909
  3. FRAGMIN [Concomitant]
     Active Substance: DALTEPARIN SODIUM
     Indication: Product used for unknown indication
     Route: 065

REACTIONS (10)
  - Tibia fracture [Unknown]
  - Dysstasia [Unknown]
  - Nasal injury [Unknown]
  - Rash macular [Unknown]
  - Ankle fracture [Unknown]
  - Contusion [Unknown]
  - Head injury [Unknown]
  - Mobility decreased [Unknown]
  - Physical assault [Unknown]
  - Limb injury [Unknown]

NARRATIVE: CASE EVENT DATE: 20240101
